FAERS Safety Report 5228968-4 (Version None)
Quarter: 2007Q1

REPORT INFORMATION
  Report Type: 
  Country: None (occurrence: None)
  Receive Date: 20070205
  Receipt Date: 20070126
  Transmission Date: 20070707
  Serious: Yes (Hospitalization)
  Sender: FDA-Public Use
  Company Number: HQWYE792226JAN07

PATIENT
  Age: 83 Year
  Sex: Male

DRUGS (1)
  1. ANCARON [Suspect]
     Indication: VENTRICULAR TACHYCARDIA
     Route: 048
     Dates: start: 20040210, end: 20040922

REACTIONS (5)
  - CARDIAC FAILURE [None]
  - CONDITION AGGRAVATED [None]
  - INTERSTITIAL LUNG DISEASE [None]
  - PNEUMONIA BACTERIAL [None]
  - RESPIRATORY FAILURE [None]
